FAERS Safety Report 8907996 (Version 3)
Quarter: 2013Q1

REPORT INFORMATION
  Report Type: Spontaneous
  Country: IT (occurrence: IT)
  Receive Date: 20121114
  Receipt Date: 20130103
  Transmission Date: 20140127
  Serious: Yes (Hospitalization, Other)
  Sender: FDA-Public Use
  Company Number: PHHY2012IT103967

PATIENT
  Sex: Male

DRUGS (5)
  1. VOLTAREN [Suspect]
     Indication: RENAL COLIC
     Dosage: 2 DF,
     Dates: start: 20121026, end: 20121101
  2. CARDIOASPIRIN [Suspect]
     Indication: MYOCARDIAL INFARCTION
     Dosage: 1 DF,
     Route: 048
     Dates: start: 20120401, end: 20121101
  3. LOPRESOR [Concomitant]
  4. MEPRAL [Concomitant]
  5. ATENOL [Concomitant]

REACTIONS (5)
  - Gastroduodenal ulcer [Recovered/Resolved]
  - Hiatus hernia [Recovered/Resolved]
  - Cardiac disorder [Recovered/Resolved]
  - Anaemia [Unknown]
  - Haemoglobin decreased [Recovered/Resolved]
